FAERS Safety Report 7020351-4 (Version None)
Quarter: 2010Q3

REPORT INFORMATION
  Report Type: 
  Country: None (occurrence: None)
  Receive Date: 20100915
  Receipt Date: 20100915
  Transmission Date: 20110219
  Serious: Yes (Other)
  Sender: FDA-Public Use
  Company Number: None

PATIENT
  Age: 17 Year
  Sex: Female
  Weight: 99.7913 kg

DRUGS (1)
  1. IMPLANON [Suspect]
     Indication: CONTRACEPTION
     Dosage: 3 YR IMPLANT SQ
     Route: 058
     Dates: start: 20090701, end: 20100901

REACTIONS (3)
  - BLOOD PRESSURE SYSTOLIC INCREASED [None]
  - MIGRAINE [None]
  - WEIGHT INCREASED [None]
